FAERS Safety Report 6601306-8 (Version None)
Quarter: 2010Q1

REPORT INFORMATION
  Report Type: 
  Country: None (occurrence: None)
  Receive Date: 20100225
  Receipt Date: 20100210
  Transmission Date: 20100710
  Serious: Yes (Death)
  Sender: FDA-Public Use
  Company Number: JP-PFIZER INC-2009291748

PATIENT
  Age: 2 Year
  Sex: Male
  Weight: 5.05 kg

DRUGS (14)
  1. SILDENAFIL CITRATE [Suspect]
     Indication: PULMONARY HYPERTENSION
     Dosage: 2.4 MG, 4X/DAY
     Route: 048
     Dates: start: 20081109, end: 20081111
  2. SILDENAFIL CITRATE [Suspect]
     Dosage: 3.6 MG, 4X/DAY
     Dates: start: 20081111, end: 20081112
  3. SILDENAFIL CITRATE [Suspect]
     Dosage: 4.0 MG, 4X/DAY
     Dates: start: 20081113, end: 20081216
  4. SILDENAFIL CITRATE [Suspect]
     Dosage: 6 MG, 4X/DAY
     Dates: start: 20081217
  5. BOSENTAN [Concomitant]
     Indication: PULMONARY ARTERIAL HYPERTENSION
     Dosage: UNK
     Route: 048
     Dates: start: 20081109, end: 20090218
  6. DIOVAN [Concomitant]
     Dosage: UNK
     Route: 048
     Dates: end: 20090125
  7. LASIX [Concomitant]
     Dosage: UNK
     Route: 048
     Dates: end: 20090125
  8. SPIRONOLACTONE [Concomitant]
     Route: 048
  9. OLPRINONE HYDROCHLORIDE [Concomitant]
     Route: 048
  10. WARFARIN [Concomitant]
     Route: 048
  11. BOSMIN [Concomitant]
     Route: 048
  12. NORADRENALINE [Concomitant]
     Dosage: UNK
     Route: 042
     Dates: start: 20081112
  13. HANP [Concomitant]
     Dosage: UNK
     Route: 042
     Dates: start: 20081124
  14. ATROPINE SULFATE HYDRATE [Concomitant]
     Dosage: UNK
     Route: 042
     Dates: start: 20081112, end: 20081231

REACTIONS (2)
  - CARDIAC FAILURE [None]
  - CONGENITAL MITRAL VALVE STENOSIS [None]
